FAERS Safety Report 24812397 (Version 1)
Quarter: 2025Q1

REPORT INFORMATION
  Report Type: Report from Study
  Country: US (occurrence: US)
  Receive Date: 20250106
  Receipt Date: 20250106
  Transmission Date: 20250409
  Serious: Yes (Hospitalization, Other)
  Sender: ABBVIE
  Company Number: US-ABBVIE-6071959

PATIENT
  Sex: Female

DRUGS (1)
  1. SKYRIZI [Suspect]
     Active Substance: RISANKIZUMAB-RZAA
     Indication: Crohn^s disease
     Route: 058
     Dates: start: 20231220

REACTIONS (4)
  - Gastric infection [Recovering/Resolving]
  - Fatigue [Recovering/Resolving]
  - Small intestinal obstruction [Recovering/Resolving]
  - Abdominal distension [Recovering/Resolving]
